FAERS Safety Report 8691122 (Version 2)
Quarter: 2013Q4

REPORT INFORMATION
  Report Type: Spontaneous
  Country: US (occurrence: US)
  Receive Date: 20120730
  Receipt Date: 20131107
  Transmission Date: 20140711
  Serious: Yes (Other)
  Sender: FDA-Public Use
  Company Number: US-009507513-1207USA009854

PATIENT
  Age: 58 Year
  Sex: Female

DRUGS (1)
  1. ZOCOR [Suspect]
     Dosage: 1 DF, UNK
     Route: 048

REACTIONS (6)
  - Asthenia [Unknown]
  - Exercise tolerance decreased [Unknown]
  - Pain in extremity [Unknown]
  - Hypoaesthesia [Unknown]
  - Gait disturbance [Unknown]
  - Weight increased [Unknown]
